FAERS Safety Report 8469479-2 (Version None)
Quarter: 2012Q2

REPORT INFORMATION
  Report Type: 
  Country: None (occurrence: None)
  Receive Date: 20120626
  Receipt Date: 20120614
  Transmission Date: 20120825
  Serious: Yes (Death, Hospitalization)
  Sender: FDA-Public Use
  Company Number: US-ACTELION-A-US2012-67304

PATIENT

DRUGS (8)
  1. SILDENAFIL [Concomitant]
     Dosage: UNK
     Dates: start: 20100701
  2. COUMADIN [Concomitant]
     Dosage: UNK
     Dates: start: 20091201
  3. DIGOXIN [Concomitant]
     Dosage: UNK
     Dates: start: 20110701
  4. NORVASC [Concomitant]
     Dosage: UNK
     Dates: start: 20120201
  5. EPOPROSTENOL SODIUM [Suspect]
     Indication: PULMONARY ARTERIAL HYPERTENSION
     Dosage: 13 NG/KG, PER MIN
     Route: 042
     Dates: start: 20110722, end: 20120611
  6. LASIX [Concomitant]
     Dosage: UNK
     Dates: start: 20120201
  7. LETAIRIS [Concomitant]
     Dosage: UNK
     Dates: start: 20110701
  8. PROTONIX [Concomitant]
     Dosage: UNK
     Dates: start: 20120201

REACTIONS (12)
  - DEVICE RELATED SEPSIS [None]
  - CIRCULATORY COLLAPSE [None]
  - OXYGEN SATURATION DECREASED [None]
  - TROPONIN INCREASED [None]
  - TACHYCARDIA [None]
  - HYPOXIA [None]
  - WHITE BLOOD CELL COUNT INCREASED [None]
  - DYSPNOEA [None]
  - PLATELET COUNT DECREASED [None]
  - DEVICE RELATED INFECTION [None]
  - BLOOD LACTIC ACID INCREASED [None]
  - CARDIAC ARREST [None]
